FAERS Safety Report 13885855 (Version 4)
Quarter: 2018Q1

REPORT INFORMATION
  Report Type: Spontaneous
  Country: US (occurrence: US)
  Receive Date: 20170821
  Receipt Date: 20180109
  Transmission Date: 20180508
  Serious: Yes (Death)
  Sender: FDA-Public Use
  Company Number: US-PIRAMAL CRITICAL CARE LIMITED-2017-PEL-003115

PATIENT
  Age: 38 Year
  Sex: Female

DRUGS (23)
  1. GABLOFEN [Suspect]
     Active Substance: BACLOFEN
     Indication: CEREBRAL PALSY
     Dosage: 560 ?G, QD POST OP DAY 6
     Route: 037
     Dates: start: 20170615
  2. GABLOFEN [Suspect]
     Active Substance: BACLOFEN
     Indication: POST LAMINECTOMY SYNDROME
     Dosage: 574 ?G, QD SIMPLE CONTINUOUS
     Route: 037
     Dates: start: 20170619
  3. CYANOCOBALAMIN. [Concomitant]
     Active Substance: CYANOCOBALAMIN
     Dosage: UNK
     Route: 065
  4. HYDROCHLOROTHIAZIDE. [Concomitant]
     Active Substance: HYDROCHLOROTHIAZIDE
     Dosage: UNK
     Route: 065
  5. MARINOL                            /00003301/ [Concomitant]
     Dosage: UNK, PRN
     Route: 065
  6. LORAZEPAM. [Concomitant]
     Active Substance: LORAZEPAM
     Dosage: UNK, PRN
     Route: 065
  7. GABLOFEN [Suspect]
     Active Substance: BACLOFEN
     Indication: SPINAL CORD INJURY
     Dosage: 599.2 ?G, QD SIMPLE CONTINUOUS
     Route: 037
  8. METHYLPHENIDATE. [Concomitant]
     Active Substance: METHYLPHENIDATE
     Dosage: UNK
     Route: 065
  9. OXYCODONE [Concomitant]
     Active Substance: OXYCODONE
     Dosage: UNK, PRN
     Route: 065
  10. TORSEMIDE. [Concomitant]
     Active Substance: TORSEMIDE
     Dosage: UNK
     Route: 065
  11. GABLOFEN [Suspect]
     Active Substance: BACLOFEN
     Indication: MOVEMENT DISORDER
     Dosage: 430 ?G, QD POST OP DAY 2
     Route: 037
  12. BELVIQ [Concomitant]
     Active Substance: LORCASERIN HYDROCHLORIDE
     Dosage: UNK
     Route: 065
  13. DESONIDE. [Concomitant]
     Active Substance: DESONIDE
     Dosage: UNK
     Route: 061
  14. GABAPENTIN. [Concomitant]
     Active Substance: GABAPENTIN
     Dosage: UNK
     Route: 065
  15. METHADONE [Concomitant]
     Active Substance: METHADONE HYDROCHLORIDE
     Dosage: UNK
     Route: 065
  16. TYLENOL [Concomitant]
     Active Substance: ACETAMINOPHEN
     Dosage: UNK, PRN
     Route: 065
  17. MUPIROCIN. [Concomitant]
     Active Substance: MUPIROCIN
     Dosage: UNK
     Route: 061
  18. PERCOCET                           /00446701/ [Concomitant]
     Active Substance: ACETAMINOPHEN\OXYCODONE HYDROCHLORIDE\OXYCODONE TEREPHTHALATE
     Dosage: UNK, SCHEDULED AND PRN
     Route: 065
  19. POTASSIUM CHLORIDE. [Concomitant]
     Active Substance: POTASSIUM CHLORIDE
     Dosage: UNK
     Route: 065
  20. SERTRALINE [Concomitant]
     Active Substance: SERTRALINE HYDROCHLORIDE
     Dosage: UNK
     Route: 065
  21. GABLOFEN [Suspect]
     Active Substance: BACLOFEN
     Indication: MUSCLE SPASTICITY
     Dosage: 480 ?G, QD POST OP DAY 5
     Route: 037
  22. BACLOFEN. [Concomitant]
     Active Substance: BACLOFEN
     Indication: WITHDRAWAL SYNDROME
     Dosage: UNK, PRN
     Route: 048
  23. PROMETHAZINE [Concomitant]
     Active Substance: PROMETHAZINE\PROMETHAZINE HYDROCHLORIDE
     Dosage: UNK
     Route: 065

REACTIONS (13)
  - Device issue [Recovered/Resolved]
  - Procedural nausea [Recovering/Resolving]
  - Death [Fatal]
  - Condition aggravated [Unknown]
  - Medical device site paraesthesia [Recovering/Resolving]
  - Medical device site extravasation [Unknown]
  - Hypertonia [Unknown]
  - Fall [Unknown]
  - Procedural vomiting [Recovering/Resolving]
  - Cerebrospinal fluid leakage [Unknown]
  - Abdominal pain [Unknown]
  - Musculoskeletal chest pain [Unknown]
  - Implant site pain [Unknown]

NARRATIVE: CASE EVENT DATE: 201608
